FAERS Safety Report 17864042 (Version 1)
Quarter: 2020Q2

REPORT INFORMATION
  Report Type: Spontaneous
  Country: US (occurrence: US)
  Receive Date: 20200604
  Receipt Date: 20200604
  Transmission Date: 20200714
  Serious: Yes (Hospitalization)
  Sender: FDA-Public Use
  Company Number: None

PATIENT
  Age: 55 Year
  Sex: Female
  Weight: 119.9 kg

DRUGS (1)
  1. ARIMIDEX [Suspect]
     Active Substance: ANASTROZOLE
     Dates: end: 20200525

REACTIONS (9)
  - Seizure [None]
  - Anosmia [None]
  - Chest pain [None]
  - Dyspnoea [None]
  - Headache [None]
  - Tremor [None]
  - Ageusia [None]
  - Suspected COVID-19 [None]
  - Hypoaesthesia [None]

NARRATIVE: CASE EVENT DATE: 20200526
